FAERS Safety Report 9552375 (Version 1)
Quarter: 2013Q3

REPORT INFORMATION
  Report Type: Spontaneous
  Country: US (occurrence: None)
  Receive Date: 20130805
  Receipt Date: 20130805
  Transmission Date: 20140515
  Serious: Yes (Other)
  Sender: FDA-Public Use
  Company Number: 1301USA001570

PATIENT
  Age: 33 Year
  Sex: Male

DRUGS (2)
  1. SINGULAIR [Suspect]
  2. RISPERIDAL [Suspect]

REACTIONS (3)
  - Liver function test abnormal [None]
  - Jaundice [None]
  - Alanine aminotransferase increased [None]
